FAERS Safety Report 25016152 (Version 2)
Quarter: 2025Q2

REPORT INFORMATION
  Report Type: Spontaneous
  Country: US (occurrence: US)
  Receive Date: 20250227
  Receipt Date: 20250422
  Transmission Date: 20250716
  Serious: No
  Sender: CHATTEM
  Company Number: US-OPELLA-2025OHG004988

PATIENT

DRUGS (1)
  1. MENTHOL\ZINC OXIDE [Suspect]
     Active Substance: MENTHOL\ZINC OXIDE
     Indication: Product used for unknown indication
     Route: 061

REACTIONS (3)
  - Product delivery mechanism issue [Unknown]
  - Product use complaint [Unknown]
  - No adverse event [Unknown]
